FAERS Safety Report 9387174 (Version 1)
Quarter: 2013Q3

REPORT INFORMATION
  Report Type: Spontaneous
  Country: US (occurrence: US)
  Receive Date: 20130708
  Receipt Date: 20130708
  Transmission Date: 20140515
  Serious: Yes (Other)
  Sender: FDA-Public Use
  Company Number: US-ROCHE-1243128

PATIENT
  Sex: Female
  Weight: 77.18 kg

DRUGS (11)
  1. RITUXAN [Suspect]
     Indication: HEPATIC CANCER
     Route: 065
     Dates: start: 201105, end: 201112
  2. RITUXAN [Suspect]
     Indication: B-CELL LYMPHOMA
  3. KERAFOAM [Suspect]
     Indication: ACNE
     Route: 061
     Dates: start: 20101029
  4. ENBREL [Suspect]
     Indication: PRODUCT USED FOR UNKNOWN INDICATION
     Dosage: 50 A SHOT
     Route: 065
     Dates: start: 201004, end: 201104
  5. PREDNISONE [Suspect]
     Indication: HEPATIC CANCER
     Route: 065
     Dates: start: 201105, end: 201112
  6. CYCLOPHOSPHAMIDE [Suspect]
     Indication: HEPATIC CANCER
     Route: 065
     Dates: start: 201105, end: 201112
  7. DOXORUBICIN [Suspect]
     Indication: HEPATIC CANCER
     Route: 065
     Dates: start: 201105, end: 201112
  8. VINCRISTINE [Suspect]
     Indication: PRODUCT USED FOR UNKNOWN INDICATION
     Route: 065
     Dates: start: 201105, end: 201112
  9. RETIN-A [Concomitant]
  10. LEVOTHYROXINE [Concomitant]
     Route: 065
     Dates: start: 2004
  11. CRESTOR [Concomitant]
     Route: 065
     Dates: start: 2001

REACTIONS (2)
  - Type 2 diabetes mellitus [Not Recovered/Not Resolved]
  - Neuropathy peripheral [Not Recovered/Not Resolved]
